FAERS Safety Report 11292420 (Version 2)
Quarter: 2015Q4

REPORT INFORMATION
  Report Type: Spontaneous
  Country: DE (occurrence: DE)
  Receive Date: 20150722
  Receipt Date: 20151005
  Transmission Date: 20160304
  Serious: Yes (Hospitalization, Other)
  Sender: FDA-Public Use
  Company Number: DE-PFIZER INC-2015239971

PATIENT
  Age: 19 Year
  Sex: Female

DRUGS (7)
  1. ZENTROPIL [Suspect]
     Active Substance: PHENYTOIN
     Indication: PETIT MAL EPILEPSY
     Dosage: 0.5 DF, 4X/DAY
  2. OSPOLOT [Interacting]
     Active Substance: SULTHIAME
     Dosage: 0.5 DF, DAILY
  3. ZENTROPIL [Interacting]
     Active Substance: PHENYTOIN
     Dosage: 0.5 DF, 2X/DAY
  4. OSPOLOT [Interacting]
     Active Substance: SULTHIAME
     Indication: PETIT MAL EPILEPSY
     Dosage: 1 DF, 3X/DAY
  5. ZENTROPIL [Interacting]
     Active Substance: PHENYTOIN
     Dosage: 1 DF, 3X/DAY
     Dates: start: 19670810, end: 19680105
  6. MESANTOIN [Concomitant]
     Active Substance: MEPHENYTOIN
     Indication: PETIT MAL EPILEPSY
     Dosage: UNK, 4X/DAY
  7. REGENON [Concomitant]
     Indication: PETIT MAL EPILEPSY
     Dosage: 1 DF, 2X/DAY

REACTIONS (3)
  - Drug interaction [Unknown]
  - Overdose [Recovered/Resolved]
  - Nervous system disorder [Not Recovered/Not Resolved]
